FAERS Safety Report 17132427 (Version 1)
Quarter: 2019Q4

REPORT INFORMATION
  Report Type: Spontaneous
  Country: FR (occurrence: FR)
  Receive Date: 20191210
  Receipt Date: 20191210
  Transmission Date: 20200122
  Serious: Yes (Hospitalization, Other)
  Sender: FDA-Public Use
  Company Number: FR-SA-2019SA334865

PATIENT
  Age: 26 Year
  Sex: Male

DRUGS (4)
  1. CODEINE PHOSPHATE/PARACETAMOL [Suspect]
     Active Substance: ACETAMINOPHEN\CODEINE PHOSPHATE
     Indication: DRUG USE DISORDER
     Dosage: 14 DF, QD
     Route: 048
     Dates: start: 2017
  2. LORAZEPAM. [Suspect]
     Active Substance: LORAZEPAM
     Indication: DRUG USE DISORDER
     Dosage: 6 MG, QD
     Route: 048
     Dates: start: 2012
  3. ZOLPIDEM TARTRATE. [Suspect]
     Active Substance: ZOLPIDEM TARTRATE
     Indication: DRUG USE DISORDER
     Dosage: 20 MG, QD
     Route: 048
     Dates: start: 2012
  4. OXAZEPAM. [Suspect]
     Active Substance: OXAZEPAM
     Indication: DRUG USE DISORDER
     Dosage: 190 MG, QD
     Route: 048
     Dates: start: 2010

REACTIONS (1)
  - Drug use disorder [Unknown]

NARRATIVE: CASE EVENT DATE: 2018
